FAERS Safety Report 6909433-2 (Version None)
Quarter: 2010Q3

REPORT INFORMATION
  Report Type: 
  Country: None (occurrence: None)
  Receive Date: 20100805
  Receipt Date: 20100726
  Transmission Date: 20110219
  Serious: Yes (Other)
  Sender: FDA-Public Use
  Company Number: US-WATSON-2010-10194

PATIENT
  Age: 65 Year
  Sex: Female

DRUGS (3)
  1. ALENDRONATE SODIUM [Suspect]
     Indication: BONE DISORDER
     Dosage: 70 MG, 1/WEEK
     Route: 048
  2. DENOSUMAB [Suspect]
     Indication: GIANT CELL TUMOUR OF TENDON SHEATH
     Dosage: 120 MG WEEKLY
     Route: 058
     Dates: start: 20070101
  3. DENOSUMAB [Suspect]
     Dosage: 120 MG EVERY 4 WEEKS
     Route: 058

REACTIONS (3)
  - MULTI-ORGAN FAILURE [None]
  - OSTEONECROSIS OF JAW [None]
  - POTENTIATING DRUG INTERACTION [None]
